FAERS Safety Report 19303003 (Version 1)
Quarter: 2021Q2

REPORT INFORMATION
  Report Type: Spontaneous
  Country: US (occurrence: US)
  Receive Date: 20210524
  Receipt Date: 20210524
  Transmission Date: 20210717
  Serious: Yes (Death, Disabling, Other)
  Sender: FDA-Public Use
  Company Number: US-PURDUE-USA-2020-0175896

PATIENT
  Sex: Male

DRUGS (2)
  1. OXYIR [Suspect]
     Active Substance: OXYCODONE HYDROCHLORIDE
     Indication: PAIN
     Route: 065
  2. OXYCONTIN [Suspect]
     Active Substance: OXYCODONE HYDROCHLORIDE
     Indication: PAIN
     Dosage: UNK
     Route: 048

REACTIONS (13)
  - Amnesia [Unknown]
  - Motor dysfunction [Unknown]
  - Depression [Unknown]
  - Overdose [Unknown]
  - Mood swings [Unknown]
  - Anger [Unknown]
  - Completed suicide [Fatal]
  - Drug dependence [Unknown]
  - Somnolence [Unknown]
  - Abnormal behaviour [Unknown]
  - Dysarthria [Unknown]
  - Fatigue [Unknown]
  - Anxiety [Unknown]
